FAERS Safety Report 4703722-8 (Version None)
Quarter: 2005Q2

REPORT INFORMATION
  Report Type: 
  Country: None (occurrence: None)
  Receive Date: 20050628
  Receipt Date: 20050616
  Transmission Date: 20051028
  Serious: Yes (Hospitalization)
  Sender: FDA-Public Use
  Company Number: 2005089479

PATIENT
  Age: 72 Year
  Sex: Female
  Weight: 68.9467 kg

DRUGS (3)
  1. BEXTRA [Suspect]
     Indication: ARTHRITIS
     Dosage: 20 MG (20 MG, 1 IN 1 D), ORAL
     Route: 048
     Dates: start: 20050604
  2. SYNTHROID [Concomitant]
  3. PRILOSEC [Concomitant]

REACTIONS (3)
  - BLADDER PROLAPSE [None]
  - BURNING SENSATION [None]
  - CELLULITIS [None]
